FAERS Safety Report 4434647-3 (Version None)
Quarter: 2004Q3

REPORT INFORMATION
  Report Type: 
  Country: None (occurrence: None)
  Receive Date: 20040827
  Receipt Date: 20040823
  Transmission Date: 20050211
  Serious: Yes (Disabling)
  Sender: FDA-Public Use
  Company Number: US-MERCK-0408USA01805

PATIENT
  Age: 79 Year
  Sex: Male

DRUGS (6)
  1. NORVASC [Concomitant]
     Route: 065
  2. CARDURA [Concomitant]
     Route: 065
  3. PROTONIX [Concomitant]
     Route: 065
  4. ZOCOR [Suspect]
     Indication: HYPERCHOLESTEROLAEMIA
     Route: 048
     Dates: start: 20010101
  5. BEXTRA [Concomitant]
     Route: 065
  6. VITAMINS (UNSPECIFIED) [Concomitant]
     Route: 065

REACTIONS (1)
  - PAIN IN EXTREMITY [None]
